FAERS Safety Report 12877617 (Version 1)
Quarter: 2016Q4

REPORT INFORMATION
  Report Type: Spontaneous
  Country: GB (occurrence: GB)
  Receive Date: 20161024
  Receipt Date: 20161024
  Transmission Date: 20170207
  Serious: Yes (Other)
  Sender: FDA-Public Use
  Company Number: GB-TEVA-705532ACC

PATIENT
  Age: 83 Year

DRUGS (12)
  1. BUMETANIDE. [Suspect]
     Active Substance: BUMETANIDE
     Dosage: 2MG IN THE MORNING 1MG AT LUNCH.
  2. PARACETAMOL [Concomitant]
     Active Substance: ACETAMINOPHEN
  3. SALBUTAMOL [Concomitant]
     Active Substance: ALBUTEROL
  4. LANSOPRAZOLE. [Suspect]
     Active Substance: LANSOPRAZOLE
     Dosage: 15 MILLIGRAM DAILY;
  5. TOLTERODINE [Concomitant]
     Active Substance: TOLTERODINE
     Dosage: 4 MILLIGRAM DAILY;
  6. WARFARIN [Concomitant]
     Active Substance: WARFARIN
  7. CODEINE [Concomitant]
     Active Substance: CODEINE
     Dosage: 4 TIMES DAILY.
  8. FINASTERIDE. [Concomitant]
     Active Substance: FINASTERIDE
     Dosage: 5 MILLIGRAM DAILY;
  9. ALENDRONIC ACID [Concomitant]
     Active Substance: ALENDRONIC ACID
     Dosage: 10 MILLIGRAM DAILY;
  10. IRBESARTAN. [Concomitant]
     Active Substance: IRBESARTAN
     Dosage: 300 MILLIGRAM DAILY;
  11. ADCAL-D3 [Concomitant]
     Active Substance: CALCIUM CARBONATE\CHOLECALCIFEROL
     Dosage: 2 DOSAGE FORMS DAILY;
  12. DOCUSATE [Concomitant]
     Active Substance: DOCUSATE
     Dosage: 600 MILLIGRAM DAILY;

REACTIONS (1)
  - Pancytopenia [Not Recovered/Not Resolved]
